FAERS Safety Report 15942300 (Version 1)
Quarter: 2019Q1

REPORT INFORMATION
  Report Type: Spontaneous
  Country: US (occurrence: US)
  Receive Date: 20190211
  Receipt Date: 20190211
  Transmission Date: 20190417
  Serious: Yes (Disabling, Other)
  Sender: FDA-Public Use
  Company Number: None

PATIENT
  Age: 33 Year
  Sex: Female
  Weight: 51.75 kg

DRUGS (6)
  1. LEVOFLOXACIN 500MG TABLET [Suspect]
     Active Substance: LEVOFLOXACIN
     Indication: SINUSITIS
     Dosage: ?          QUANTITY:1 TABLET(S);?
     Route: 048
     Dates: start: 20190108, end: 20190114
  2. PROP HFA [Concomitant]
  3. OMEPRAZOLE. [Concomitant]
     Active Substance: OMEPRAZOLE
  4. FLUTICASONE PROP [Concomitant]
     Active Substance: FLUTICASONE PROPIONATE
  5. RANITIDINE. [Concomitant]
     Active Substance: RANITIDINE
  6. DROSPIRENONE [Concomitant]
     Active Substance: DROSPIRENONE

REACTIONS (13)
  - Fall [None]
  - Aphasia [None]
  - Muscular weakness [None]
  - Confusional state [None]
  - Neuralgia [None]
  - Tremor [None]
  - Cognitive disorder [None]
  - Myalgia [None]
  - Arthralgia [None]
  - Nausea [None]
  - Fatigue [None]
  - Apraxia [None]
  - Gait disturbance [None]

NARRATIVE: CASE EVENT DATE: 20190108
